FAERS Safety Report 11884052 (Version 2)
Quarter: 2016Q1

REPORT INFORMATION
  Report Type: Spontaneous
  Country: US (occurrence: US)
  Receive Date: 20160102
  Receipt Date: 20160222
  Transmission Date: 20160526
  Serious: Yes (Hospitalization)
  Sender: FDA-Public Use
  Company Number: US-AUROBINDO-AUR-APL-2015-12062

PATIENT
  Sex: Male
  Weight: 89.7 kg

DRUGS (1)
  1. SUMATRIPTAN. [Suspect]
     Active Substance: SUMATRIPTAN
     Indication: HEADACHE
     Dosage: 25 MG, TWO TIMES A DAY
     Route: 048

REACTIONS (4)
  - Vomiting [Unknown]
  - Drug ineffective [Unknown]
  - Headache [Unknown]
  - Nausea [Unknown]
